FAERS Safety Report 5862160-5 (Version None)
Quarter: 2008Q3

REPORT INFORMATION
  Report Type: 
  Country: None (occurrence: None)
  Receive Date: 20080828
  Receipt Date: 20080514
  Transmission Date: 20090109
  Serious: Yes (Hospitalization, Disabling)
  Sender: FDA-Public Use
  Company Number: DE-SP-2008-01024

PATIENT
  Age: 72 Year
  Sex: Male

DRUGS (1)
  1. IMMUCYST [Suspect]
     Indication: BLADDER CANCER
     Dosage: NOT REPORTED
     Route: 043
     Dates: start: 20040615, end: 20050901

REACTIONS (4)
  - CONTRACTED BLADDER [None]
  - DYSURIA [None]
  - MICTURITION URGENCY [None]
  - URINARY TRACT INFECTION [None]
